FAERS Safety Report 10386793 (Version 1)
Quarter: 2014Q1

REPORT INFORMATION
  Report Type: Spontaneous
  Country: US (occurrence: None)
  Receive Date: 20140306
  Receipt Date: 20140306
  Transmission Date: 20141002
  Serious: Yes (Hospitalization, Other)
  Sender: FDA-Public Use
  Company Number: 163-21880-13061065

PATIENT
  Age: 51 Year
  Sex: Male

DRUGS (7)
  1. REVLIMID [Suspect]
     Indication: PLASMA CELL MYELOMA
     Dosage: 25 MG, 21 IN 28 D, PO
     Route: 048
     Dates: start: 20130429
  2. PERCOCET (OXYCOCET) [Concomitant]
  3. DECADRON (DEXAMETHASONE) [Concomitant]
  4. ASPIRIN (ACETYLSALICYLIC ACID) [Concomitant]
  5. OXYCODONE (OXYCODONE) [Concomitant]
  6. ZOMETA (ZOLEDRONIC ACID) (INJECTION) [Concomitant]
  7. ACYCLOVIR (ACICLOVIR) [Concomitant]

REACTIONS (3)
  - Deep vein thrombosis [None]
  - Anaemia [None]
  - Pulmonary embolism [None]
